FAERS Safety Report 8285755-0 (Version None)
Quarter: 2012Q2

REPORT INFORMATION
  Report Type: 
  Country: None (occurrence: None)
  Receive Date: 20120413
  Receipt Date: 20120404
  Transmission Date: 20120825
  Serious: Yes (Hospitalization)
  Sender: FDA-Public Use
  Company Number: US-ELI_LILLY_AND_COMPANY-US201109000209

PATIENT
  Sex: Female

DRUGS (10)
  1. FORTEO [Suspect]
     Dosage: 20 UG, QD
     Route: 065
  2. FORTEO [Suspect]
     Dosage: 20 UG, QD
     Route: 065
  3. METOPROLOL TARTRATE [Concomitant]
  4. VITAMINS NOS [Concomitant]
  5. SIMVASTATIN [Concomitant]
  6. FORTEO [Suspect]
     Indication: OSTEOPOROSIS
     Dosage: 20 UG, QD
     Route: 065
     Dates: start: 20100701
  7. HYDROCODONE BITARTRATE [Concomitant]
  8. LATANOPROST [Concomitant]
  9. CALCIUM CARBONATE [Concomitant]
  10. TIMOLOL MALEATE [Concomitant]

REACTIONS (3)
  - CERVICAL VERTEBRAL FRACTURE [None]
  - BONE DISORDER [None]
  - SCOLIOSIS [None]
